FAERS Safety Report 9193291 (Version 1)
Quarter: 2013Q1

REPORT INFORMATION
  Report Type: Spontaneous
  Country: US (occurrence: US)
  Receive Date: 20130327
  Receipt Date: 20130327
  Transmission Date: 20140127
  Serious: No
  Sender: FDA-Public Use
  Company Number: US-PFIZER INC-2012156142

PATIENT
  Age: 77 Year
  Sex: Female

DRUGS (42)
  1. ATARAX [Suspect]
     Dosage: UNK
  2. DETROL [Suspect]
     Dosage: UNK
  3. DOXEPIN HCL [Suspect]
     Dosage: UNK
  4. LIPITOR [Suspect]
     Dosage: UNK
  5. MEDROL [Suspect]
     Dosage: UNK
  6. MORPHINE SULFATE [Suspect]
     Dosage: UNK
  7. PREVACID [Suspect]
     Dosage: UNK
  8. SUPRAX [Suspect]
     Dosage: UNK
  9. XANAX [Suspect]
     Dosage: UNK
  10. ZOLOFT [Suspect]
     Dosage: UNK
  11. NYSTATIN [Suspect]
     Dosage: UNK
     Route: 061
  12. AXID [Suspect]
     Dosage: UNK
  13. BENADRYL [Suspect]
     Dosage: UNK
  14. BIAXIN [Suspect]
     Dosage: UNK
  15. BUSPAR [Suspect]
     Dosage: UNK
  16. CARAFATE [Suspect]
     Dosage: UNK
  17. CECLOR [Suspect]
     Dosage: UNK
  18. CEFZIL [Suspect]
     Dosage: UNK
  19. CIPRO [Suspect]
     Dosage: UNK
  20. CODEINE [Suspect]
     Dosage: UNK
  21. DARVOCET [Suspect]
     Dosage: UNK
  22. DESYREL [Suspect]
     Dosage: UNK
  23. DEMEROL [Suspect]
     Dosage: UNK
  24. DITROPAN [Suspect]
     Dosage: UNK
  25. DONNATAL [Suspect]
     Dosage: UNK
  26. DYAZIDE [Suspect]
     Dosage: UNK
  27. DEPAKOTE [Suspect]
     Dosage: UNK
  28. ELAVIL [Suspect]
     Dosage: UNK
  29. HYDROCODONE [Suspect]
     Dosage: UNK
  30. KLONOPIN [Suspect]
     Dosage: UNK
  31. MEPERGAN FORTIS [Suspect]
     Dosage: UNK
  32. NAPROSYN [Suspect]
     Dosage: UNK
  33. LORCET [Suspect]
     Dosage: UNK
  34. ROBINUL [Suspect]
     Dosage: UNK
  35. SYNTHROID [Suspect]
     Dosage: UNK
  36. TOLECTIN [Suspect]
     Dosage: UNK
  37. TORADOL [Suspect]
     Dosage: UNK
  38. TORECAN [Suspect]
     Dosage: UNK
  39. TYLENOL [Suspect]
     Dosage: UNK
  40. UNISEDIL [Suspect]
     Dosage: UNK
  41. ZOCOR [Suspect]
     Dosage: UNK
  42. ZYRTEC [Suspect]
     Dosage: UNK

REACTIONS (1)
  - Drug hypersensitivity [Unknown]
